FAERS Safety Report 5471618-2 (Version None)
Quarter: 2007Q3

REPORT INFORMATION
  Report Type: 
  Country: None (occurrence: None)
  Receive Date: 20070928
  Receipt Date: 20070208
  Transmission Date: 20080115
  Serious: No
  Sender: FDA-Public Use
  Company Number: US-BRISTOL-MYERS SQUIBB COMPANY-13673751

PATIENT
  Age: 69 Year
  Sex: Male
  Weight: 97 kg

DRUGS (7)
  1. DEFINITY [Suspect]
     Indication: ECHOCARDIOGRAM
     Dosage: DOSE RANGE 0.25-0.3 ML IN NORMAL SALINE IV PUSH
     Route: 042
     Dates: start: 20060208, end: 20060208
  2. LIPITOR [Concomitant]
  3. PREDNISONE [Concomitant]
  4. METOPROLOL SUCCINATE [Concomitant]
  5. FUROSEMIDE [Concomitant]
  6. POTASSIUM CHLORIDE [Concomitant]
  7. PREVACID [Concomitant]

REACTIONS (1)
  - BACK PAIN [None]
